FAERS Safety Report 9803012 (Version 1)
Quarter: 2014Q1

REPORT INFORMATION
  Report Type: Spontaneous
  Country: US (occurrence: US)
  Receive Date: 20140108
  Receipt Date: 20140108
  Transmission Date: 20141002
  Serious: Yes (Death, Other)
  Sender: FDA-Public Use
  Company Number: US-JNJFOC-20131218301

PATIENT
  Sex: 0

DRUGS (10)
  1. DOXORUBICIN HYDROCHLORIDE [Suspect]
     Indication: ACUTE LYMPHOCYTIC LEUKAEMIA
     Dosage: ODD COURSES 1, 3, 5, 7
     Route: 042
  2. CYCLOPHOSPHAMIDE [Suspect]
     Indication: ACUTE LYMPHOCYTIC LEUKAEMIA
     Dosage: ODD COURSES 1, 3, 5, 7
     Route: 065
  3. VINCRISTINE [Suspect]
     Indication: ACUTE LYMPHOCYTIC LEUKAEMIA
     Dosage: ODD COURSES 1, 3, 5, 7
     Route: 065
  4. DEXAMETHASONE [Suspect]
     Indication: ACUTE LYMPHOCYTIC LEUKAEMIA
     Dosage: ODD COURSES 1, 3, 5, 7
     Route: 065
  5. OFATUMUMAB [Suspect]
     Indication: ACUTE LYMPHOCYTIC LEUKAEMIA
     Dosage: COURSES 1, 3, AND 4
     Route: 065
  6. METHOTREXATE [Suspect]
     Indication: ACUTE LYMPHOCYTIC LEUKAEMIA
     Dosage: EVEN COURSES 2, 4, 6, 8
     Route: 065
  7. CYTARABINE [Suspect]
     Indication: ACUTE LYMPHOCYTIC LEUKAEMIA
     Route: 065
  8. PONATINIB [Suspect]
     Indication: ACUTE LYMPHOCYTIC LEUKAEMIA
     Dosage: DAILY FOR THE FIRST 14 DAYS OF CYCLE 1 THEN CONTINUOUSLY FOR THE SUBSEQUENT 7 CYCLES
     Route: 048
  9. RITUXIMAB [Suspect]
     Indication: ACUTE LYMPHOCYTIC LEUKAEMIA
     Dosage: ADMINISTERED DURING THE FIRST 4 CYCLES
     Route: 065
  10. PREDNISONE [Suspect]
     Indication: ACUTE LYMPHOCYTIC LEUKAEMIA
     Route: 065

REACTIONS (15)
  - Multi-organ failure [Fatal]
  - Platelet count abnormal [Unknown]
  - Septic shock [Fatal]
  - Liver function test abnormal [Unknown]
  - Renal vein thrombosis [Unknown]
  - Pulmonary embolism [Unknown]
  - Myocardial infarction [Unknown]
  - Pancreatitis [Unknown]
  - Myocardial infarction [Fatal]
  - Rash [Unknown]
  - Neutrophil count abnormal [Unknown]
  - Blood bilirubin increased [Unknown]
  - Neuropathy peripheral [Unknown]
  - Febrile neutropenia [Unknown]
  - Off label use [Unknown]
